FAERS Safety Report 7570345-5 (Version None)
Quarter: 2011Q2

REPORT INFORMATION
  Report Type: 
  Country: None (occurrence: None)
  Receive Date: 20110622
  Receipt Date: 20110622
  Transmission Date: 20111010
  Serious: Yes (Disabling)
  Sender: FDA-Public Use
  Company Number: None

PATIENT
  Age: 51 Year
  Sex: Female
  Weight: 78.0187 kg

DRUGS (1)
  1. WARFARIN SODIUM [Suspect]
     Indication: DEEP VEIN THROMBOSIS
     Dosage: 5MG DAILY PO
     Route: 048
     Dates: start: 20110610, end: 20110612

REACTIONS (5)
  - PRODUCT TASTE ABNORMAL [None]
  - INTERNATIONAL NORMALISED RATIO DECREASED [None]
  - TONGUE COATED [None]
  - STOMATITIS [None]
  - SOMNOLENCE [None]
